FAERS Safety Report 5883607-4 (Version None)
Quarter: 2008Q3

REPORT INFORMATION
  Report Type: 
  Country: None (occurrence: None)
  Receive Date: 20080915
  Receipt Date: 20080904
  Transmission Date: 20090109
  Serious: Yes (Other)
  Sender: FDA-Public Use
  Company Number: PHHY2008GB20652

PATIENT
  Sex: Female

DRUGS (2)
  1. CLOZARIL [Suspect]
     Indication: SCHIZOPHRENIA
     Dosage: UNK
     Dates: start: 20020515, end: 20040630
  2. QUETIAPINE [Concomitant]
     Dosage: UNK

REACTIONS (4)
  - BIOPSY LIVER [None]
  - HEPATIC STEATOSIS [None]
  - SALIVARY HYPERSECRETION [None]
  - TACHYCARDIA [None]
